FAERS Safety Report 8073967-0 (Version None)
Quarter: 2012Q1

REPORT INFORMATION
  Report Type: 
  Country: None (occurrence: None)
  Receive Date: 20120126
  Receipt Date: 20120124
  Transmission Date: 20120608
  Serious: Yes (Life-Threatening, Hospitalization)
  Sender: FDA-Public Use
  Company Number: US-JNJFOC-20120102325

PATIENT
  Sex: Male
  Weight: 119.75 kg

DRUGS (9)
  1. STELARA [Suspect]
     Indication: PSORIASIS
     Route: 058
     Dates: start: 20110708
  2. STELARA [Suspect]
     Route: 058
     Dates: start: 20111228
  3. STELARA [Suspect]
     Route: 058
     Dates: start: 20101221
  4. STELARA [Suspect]
     Route: 058
     Dates: start: 20110117
  5. ASCORBIC ACID [Concomitant]
     Indication: GENERAL PHYSICAL CONDITION
  6. SORIATANE [Concomitant]
     Indication: PSORIASIS
     Route: 048
     Dates: start: 20111024
  7. STELARA [Suspect]
     Route: 058
     Dates: start: 20111010
  8. STELARA [Suspect]
     Route: 058
     Dates: start: 20110408
  9. MOTRIN [Concomitant]
     Indication: PAIN
     Dosage: AS NEEDED
     Route: 048

REACTIONS (1)
  - MYOCARDIAL INFARCTION [None]
